FAERS Safety Report 5476580-4 (Version None)
Quarter: 2007Q4

REPORT INFORMATION
  Report Type: 
  Country: None (occurrence: None)
  Receive Date: 20071004
  Receipt Date: 20070927
  Transmission Date: 20080405
  Serious: Yes (Hospitalization)
  Sender: FDA-Public Use
  Company Number: PHHO2007GB05278

PATIENT
  Age: 40 Year
  Sex: Female
  Weight: 76 kg

DRUGS (7)
  1. EXJADE [Suspect]
     Indication: BLOOD IRON INCREASED
     Dosage: 1875 MG, QD
     Dates: start: 20070307
  2. SEVREDOL [Concomitant]
  3. FOLIC ACID [Concomitant]
  4. TRAMADOL HCL [Concomitant]
  5. IBUPROFEN [Concomitant]
  6. CYCLIZINE [Concomitant]
  7. PENICILLIN V [Concomitant]

REACTIONS (13)
  - BACK PAIN [None]
  - DIARRHOEA [None]
  - DIARRHOEA HAEMORRHAGIC [None]
  - HYPERKALAEMIA [None]
  - LOWER RESPIRATORY TRACT INFECTION [None]
  - NAUSEA [None]
  - PAIN [None]
  - PAIN IN EXTREMITY [None]
  - PRODUCTIVE COUGH [None]
  - PYREXIA [None]
  - SICKLE CELL ANAEMIA WITH CRISIS [None]
  - VAGINAL DISCHARGE [None]
  - VULVOVAGINITIS TRICHOMONAL [None]
